FAERS Safety Report 6688360-2 (Version None)
Quarter: 2010Q2

REPORT INFORMATION
  Report Type: 
  Country: None (occurrence: None)
  Receive Date: 20100420
  Receipt Date: 20100409
  Transmission Date: 20101027
  Serious: Yes (Other)
  Sender: FDA-Public Use
  Company Number: PHHY2010BR12736

PATIENT
  Age: 33 Year
  Sex: Male
  Weight: 92 kg

DRUGS (1)
  1. FORASEQ [Suspect]
     Indication: ASTHMA
     Dosage: 12/400 MCG, 1 CAPSULE OF EACH SUBSTANCE, ONCE A DAY

REACTIONS (7)
  - DRUG INEFFECTIVE [None]
  - DRY THROAT [None]
  - HEAD DISCOMFORT [None]
  - HYPOXIA [None]
  - INCREASED UPPER AIRWAY SECRETION [None]
  - RHINORRHOEA [None]
  - SNEEZING [None]
